FAERS Safety Report 7484164-1 (Version None)
Quarter: 2011Q2

REPORT INFORMATION
  Report Type: 
  Country: None (occurrence: None)
  Receive Date: 20110517
  Receipt Date: 20110509
  Transmission Date: 20111010
  Serious: Yes (Other)
  Sender: FDA-Public Use
  Company Number: JP-B.I. PHARMACEUTICALS,INC./RIDGEFIELD-2011-BP-10975NB

PATIENT
  Sex: Male

DRUGS (3)
  1. PRERAN [Concomitant]
     Indication: HYPERTENSION
     Dosage: 1 MG
     Route: 048
     Dates: start: 20100907
  2. NORVASC [Concomitant]
     Indication: HYPERTENSION
     Dosage: 5 MG
     Route: 048
     Dates: start: 20100907
  3. PRAZAXA [Suspect]
     Indication: ATRIAL FIBRILLATION
     Dosage: 220 MG
     Route: 048
     Dates: start: 20110322

REACTIONS (2)
  - DYSPNOEA [None]
  - CARDIAC FAILURE [None]
